FAERS Safety Report 8858545 (Version 1)
Quarter: 2012Q4

REPORT INFORMATION
  Report Type: Report from Study
  Country: DE (occurrence: DE)
  Receive Date: 20121024
  Receipt Date: 20121024
  Transmission Date: 20130627
  Serious: Yes (Hospitalization)
  Sender: FDA-Public Use
  Company Number: DE-ROCHE-1148552

PATIENT
  Sex: Female
  Weight: 80 kg

DRUGS (1)
  1. CAPECITABINE [Suspect]
     Indication: GASTRIC CANCER
     Route: 048
     Dates: start: 20111018, end: 20111031

REACTIONS (2)
  - Urinary tract infection [Recovered/Resolved]
  - Gastritis [Recovered/Resolved]
